FAERS Safety Report 10949318 (Version 5)
Quarter: 2017Q1

REPORT INFORMATION
  Report Type: Report from Study
  Country: JP (occurrence: JP)
  Receive Date: 20150324
  Receipt Date: 20170228
  Transmission Date: 20170428
  Serious: Yes (Death, Hospitalization, Disabling, Other)
  Sender: FDA-Public Use
  Company Number: JP-INCYTE CORPORATION-2015IN001049

PATIENT
  Age: 49 Year
  Sex: Female
  Weight: 80 kg

DRUGS (16)
  1. DAIPHEN [Concomitant]
     Active Substance: SULFAMETHOXAZOLE\TRIMETHOPRIM
     Dosage: 0.5 DF, UNK
     Route: 048
     Dates: start: 20150109, end: 20150308
  2. DILTIAZEM. [Concomitant]
     Active Substance: DILTIAZEM
     Indication: PRIMARY MYELOFIBROSIS
     Dosage: UNK
     Route: 065
     Dates: start: 20150117, end: 20150308
  3. AMLODIPINE [Concomitant]
     Active Substance: AMLODIPINE BESYLATE
     Dosage: 10 MG, UNK
     Route: 048
     Dates: start: 20150122, end: 20150308
  4. JAKAVI [Suspect]
     Active Substance: RUXOLITINIB
     Indication: MYELOFIBROSIS
     Dosage: 5 MG, BID
     Route: 048
     Dates: start: 20141208, end: 20150105
  5. DAIPHEN [Concomitant]
     Active Substance: SULFAMETHOXAZOLE\TRIMETHOPRIM
     Indication: INFECTION PROPHYLAXIS
     Dosage: 12 DF, QD
     Route: 048
     Dates: start: 20141212, end: 20150107
  6. IRRADIATED LEUKOCYTE POOR RED CELLS [Concomitant]
     Dosage: 2 IU, QD
  7. HYDREA [Concomitant]
     Active Substance: HYDROXYUREA
     Indication: PRIMARY MYELOFIBROSIS
     Dosage: 1500 MG, UNK
     Route: 048
     Dates: start: 20150106, end: 20150107
  8. MEROPENEM. [Suspect]
     Active Substance: MEROPENEM
     Indication: PRIMARY MYELOFIBROSIS
     Dosage: 0.5 G, QD
     Route: 065
     Dates: start: 20150115, end: 20150116
  9. IRRADIATED LEUKOCYTE POOR RED CELLS [Concomitant]
     Indication: MYELOFIBROSIS
     Dosage: 2 IU, UNK
     Route: 065
  10. IRRADIATED PLATELET CONCENTRATE, LEUKOCYTES R [Concomitant]
     Dosage: 15 IU, UNK
     Route: 065
     Dates: start: 20150102, end: 20150102
  11. IRRADIATED PLATELET CONCENTRATE, LEUKOCYTES R [Concomitant]
     Dosage: 10 IU, UNK
     Route: 065
     Dates: end: 20150305
  12. AMLODIPINE [Concomitant]
     Active Substance: AMLODIPINE BESYLATE
     Indication: PRIMARY MYELOFIBROSIS
     Dosage: 5 MG, UNK
     Route: 048
     Dates: start: 20150119, end: 20150121
  13. IRRADIATED LEUKOCYTE POOR RED CELLS [Concomitant]
     Dosage: 2 IU, QD
     Route: 065
     Dates: end: 20150306
  14. IRRADIATED PLATELET CONCENTRATE, LEUKOCYTES R [Concomitant]
     Indication: MYELOFIBROSIS
     Dosage: 10 IU, QD
     Route: 065
     Dates: start: 20141229
  15. DAIPHEN [Concomitant]
     Active Substance: SULFAMETHOXAZOLE\TRIMETHOPRIM
     Indication: PRODUCT USED FOR UNKNOWN INDICATION
     Dosage: UNK DF, UNK
     Route: 048
     Dates: start: 20150109
  16. DAIPHEN [Concomitant]
     Active Substance: SULFAMETHOXAZOLE\TRIMETHOPRIM
     Dosage: UNK

REACTIONS (5)
  - Nephrotic syndrome [Not Recovered/Not Resolved]
  - Epilepsy [Recovering/Resolving]
  - Myelofibrosis [Fatal]
  - Lung disorder [Recovering/Resolving]
  - White blood cell count decreased [Recovered/Resolved]

NARRATIVE: CASE EVENT DATE: 20150102
